FAERS Safety Report 13526106 (Version 1)
Quarter: 2017Q2

REPORT INFORMATION
  Report Type: Spontaneous
  Country: HR (occurrence: HR)
  Receive Date: 20170509
  Receipt Date: 20170509
  Transmission Date: 20170830
  Serious: Yes (Hospitalization, Other)
  Sender: FDA-Public Use
  Company Number: HR-ORION CORPORATION ORION PHARMA-ENT 2017-0077

PATIENT
  Age: 80 Year
  Sex: Female

DRUGS (3)
  1. ENTACAPONE. [Suspect]
     Active Substance: ENTACAPONE
     Indication: PARKINSON^S DISEASE
     Route: 048
  2. ROPINIROLE. [Suspect]
     Active Substance: ROPINIROLE
     Indication: PARKINSON^S DISEASE
     Route: 048
  3. LEVODOPA [Suspect]
     Active Substance: LEVODOPA
     Indication: PARKINSON^S DISEASE
     Route: 048

REACTIONS (6)
  - Cognitive disorder [Recovering/Resolving]
  - Acute kidney injury [Recovering/Resolving]
  - Rhabdomyolysis [Recovering/Resolving]
  - Pancreatitis relapsing [Recovering/Resolving]
  - Drug withdrawal syndrome [Recovering/Resolving]
  - Neuroleptic malignant syndrome [Recovering/Resolving]
